FAERS Safety Report 7448415-1 (Version None)
Quarter: 2011Q2

REPORT INFORMATION
  Report Type: 
  Country: None (occurrence: None)
  Receive Date: 20110429
  Receipt Date: 20100506
  Transmission Date: 20111010
  Serious: No
  Sender: FDA-Public Use
  Company Number: US-ASTRAZENECA-2010SE20793

PATIENT
  Age: 76 Year
  Sex: Male
  Weight: 97.5 kg

DRUGS (10)
  1. LOSARTAN POTASSIUM [Concomitant]
  2. LISINOPRIL [Concomitant]
  3. EMADINE [Concomitant]
  4. VICODIN [Concomitant]
  5. NEXIUM [Suspect]
     Indication: GASTROOESOPHAGEAL REFLUX DISEASE
     Route: 048
  6. PROZAC [Concomitant]
  7. TAMSULOSIN HCL [Concomitant]
  8. NEXIUM [Suspect]
     Route: 048
     Dates: start: 20010101
  9. FINASTARIDE [Concomitant]
  10. AMYLOTIPINE [Concomitant]

REACTIONS (2)
  - WEIGHT INCREASED [None]
  - INCORRECT DOSE ADMINISTERED [None]
